FAERS Safety Report 8252766-0 (Version None)
Quarter: 2012Q2

REPORT INFORMATION
  Report Type: 
  Country: None (occurrence: None)
  Receive Date: 20120402
  Receipt Date: 20111213
  Transmission Date: 20120825
  Serious: No
  Sender: FDA-Public Use
  Company Number: US-ABBOTT-11P-163-0883470-00

PATIENT
  Sex: Male
  Weight: 115.77 kg

DRUGS (5)
  1. XANAX [Concomitant]
     Indication: ANXIETY
  2. METFORMIN HCL [Concomitant]
     Indication: TYPE 2 DIABETES MELLITUS
  3. OXYCODONE HCL [Concomitant]
     Indication: BACK PAIN
     Dosage: ABOUT 18 PILLS/DAY
  4. ANDROGEL [Suspect]
     Indication: BLOOD TESTOSTERONE DECREASED
     Dosage: PACKETS
  5. OXYCODONE HCL [Concomitant]
     Dosage: 20 TO 24/DAY
     Dates: end: 20111101

REACTIONS (1)
  - URINARY INCONTINENCE [None]
